FAERS Safety Report 10989424 (Version 1)
Quarter: 2015Q2

REPORT INFORMATION
  Report Type: Spontaneous
  Country: US (occurrence: US)
  Receive Date: 20150406
  Receipt Date: 20150406
  Transmission Date: 20150821
  Serious: No
  Sender: FDA-Public Use
  Company Number: US-PFIZER INC-2015118122

PATIENT
  Age: 64 Year
  Sex: Male
  Weight: 111 kg

DRUGS (1)
  1. CHANTIX [Suspect]
     Active Substance: VARENICLINE TARTRATE
     Indication: SMOKING CESSATION THERAPY
     Dosage: UNK
     Dates: start: 2014

REACTIONS (3)
  - Abnormal dreams [Not Recovered/Not Resolved]
  - Drug ineffective [Unknown]
  - Blood cholesterol increased [Recovering/Resolving]
